FAERS Safety Report 20175249 (Version 1)
Quarter: 2021Q4

REPORT INFORMATION
  Report Type: Spontaneous
  Country: US (occurrence: None)
  Receive Date: 20211209
  Receipt Date: 20211209
  Transmission Date: 20220303
  Serious: No
  Sender: FDA-Public Use
  Company Number: None

PATIENT
  Age: 70 Year
  Sex: Female
  Weight: 59 kg

DRUGS (4)
  1. CAPECITABINE [Suspect]
     Active Substance: CAPECITABINE
     Indication: Colon cancer
     Dosage: OTHER FREQUENCY : BID FOR 14/21 DAYS;?
     Route: 048
     Dates: start: 20211102
  2. DIPHENHYDRAMINE [Concomitant]
  3. ONDANSETRON [Concomitant]
  4. PROCHLORPERAZINE [Concomitant]

REACTIONS (1)
  - Accidental underdose [None]

NARRATIVE: CASE EVENT DATE: 20211208
